FAERS Safety Report 8610953-3 (Version None)
Quarter: 2012Q3

REPORT INFORMATION
  Report Type: 
  Country: None (occurrence: None)
  Receive Date: 20120808
  Receipt Date: 20120725
  Transmission Date: 20120928
  Serious: Yes (Death)
  Sender: FDA-Public Use
  Company Number: 2012MA009113

PATIENT
  Age: 37 Year
  Sex: Female

DRUGS (3)
  1. CYCLOBENZAPRINE [Suspect]
  2. KADIAN [Suspect]
  3. ETHANOL [Suspect]

REACTIONS (13)
  - COMPLETED SUICIDE [None]
  - HEART RATE INCREASED [None]
  - CARDIO-RESPIRATORY ARREST [None]
  - HYPOTENSION [None]
  - NO THERAPEUTIC RESPONSE [None]
  - ACIDOSIS [None]
  - ATRIAL FIBRILLATION [None]
  - TOXICITY TO VARIOUS AGENTS [None]
  - CEREBRAL HYPOPERFUSION [None]
  - UNRESPONSIVE TO STIMULI [None]
  - BRAIN DEATH [None]
  - HYPOXIC-ISCHAEMIC ENCEPHALOPATHY [None]
  - HYPOTHERMIA [None]
